FAERS Safety Report 6177498-4 (Version None)
Quarter: 2009Q2

REPORT INFORMATION
  Report Type: 
  Country: None (occurrence: None)
  Receive Date: 20090504
  Receipt Date: 20090424
  Transmission Date: 20091009
  Serious: Yes (Other)
  Sender: FDA-Public Use
  Company Number: PHHO2009GB05411

PATIENT
  Sex: Male

DRUGS (2)
  1. CERTICAN [Suspect]
     Indication: INSULINOMA
     Dosage: 10 MG ALTERNATE DAY
  2. INOSINE [Concomitant]

REACTIONS (1)
  - BONE MARROW FAILURE [None]
